FAERS Safety Report 4304449-7 (Version None)
Quarter: 2004Q1

REPORT INFORMATION
  Report Type: 
  Country: None (occurrence: None)
  Receive Date: 20040225
  Receipt Date: 20040223
  Transmission Date: 20041129
  Serious: Yes (Hospitalization)
  Sender: FDA-Public Use
  Company Number: 04-02-0279

PATIENT
  Age: 15 Year
  Sex: Male
  Weight: 49 kg

DRUGS (2)
  1. PROBENECID W/ COLCHICINE [Suspect]
     Indication: FAMILIAL MEDITERRANEAN FEVER
     Dosage: 0.5-1.5MG/D
  2. AZATHIOPRINE [Concomitant]

REACTIONS (11)
  - ABDOMINAL PAIN [None]
  - ALANINE AMINOTRANSFERASE INCREASED [None]
  - ARTHRALGIA [None]
  - ARTHRITIS [None]
  - ASPARTATE AMINOTRANSFERASE DECREASED [None]
  - BLOOD CREATINE PHOSPHOKINASE INCREASED [None]
  - BLOOD LACTATE DEHYDROGENASE INCREASED [None]
  - BODY TEMPERATURE INCREASED [None]
  - MUSCULAR WEAKNESS [None]
  - MYALGIA [None]
  - PERITONITIS [None]
